FAERS Safety Report 10022757 (Version 1)
Quarter: 2014Q1

REPORT INFORMATION
  Report Type: Spontaneous
  Country: GB (occurrence: GB)
  Receive Date: 20140319
  Receipt Date: 20140319
  Transmission Date: 20141002
  Serious: Yes (Hospitalization, Disabling)
  Sender: FDA-Public Use
  Company Number: GB-ACTAVIS-2014-04940

PATIENT
  Age: 54 Year
  Sex: Female

DRUGS (1)
  1. DOXYCYCLINE HYCLATE (UNKNOWN) [Suspect]
     Indication: DERMATITIS
     Dosage: 100 MG, DAILY
     Route: 048
     Dates: start: 20130917, end: 20131112

REACTIONS (2)
  - Congestive cardiomyopathy [Not Recovered/Not Resolved]
  - Dyspnoea exertional [Unknown]
